FAERS Safety Report 10490547 (Version 3)
Quarter: 2014Q4

REPORT INFORMATION
  Report Type: Spontaneous
  Country: DE (occurrence: DE)
  Receive Date: 20141002
  Receipt Date: 20141117
  Transmission Date: 20150528
  Serious: Yes (Disabling)
  Sender: FDA-Public Use
  Company Number: DE-BAXTER-2014BAX024512

PATIENT
  Age: 43 Year
  Sex: Male
  Weight: 83 kg

DRUGS (1)
  1. SUPRANE [Suspect]
     Active Substance: DESFLURANE
     Indication: OCCUPATIONAL EXPOSURE TO PRODUCT
     Route: 031
     Dates: start: 20131029

REACTIONS (7)
  - Occupational exposure to product [Unknown]
  - Eye irritation [Unknown]
  - Punctate keratitis [Unknown]
  - Accidental exposure to product [Not Recovered/Not Resolved]
  - Chemical burns of eye [Not Recovered/Not Resolved]
  - Visual impairment [Not Recovered/Not Resolved]
  - Dry eye [Not Recovered/Not Resolved]

NARRATIVE: CASE EVENT DATE: 20131029
